FAERS Safety Report 6645381-3 (Version None)
Quarter: 2010Q1

REPORT INFORMATION
  Report Type: 
  Country: None (occurrence: None)
  Receive Date: 20100322
  Receipt Date: 20100315
  Transmission Date: 20100710
  Serious: Yes (Other)
  Sender: FDA-Public Use
  Company Number: JP-MERCK-1002USA00177

PATIENT
  Age: 85 Year
  Sex: Male

DRUGS (6)
  1. PEPCID [Suspect]
     Indication: GASTRITIS PROPHYLAXIS
     Route: 048
     Dates: start: 20100114, end: 20100127
  2. PEPCID [Suspect]
     Route: 048
     Dates: start: 20100128, end: 20100128
  3. AMLODIPINE BESYLATE [Concomitant]
     Indication: HYPERTENSION
     Route: 065
     Dates: start: 20100115
  4. SEPAMIT R [Concomitant]
     Indication: HYPERTENSION
     Route: 065
     Dates: start: 20100114, end: 20100120
  5. BIOFERMIN [Concomitant]
     Route: 065
     Dates: start: 20100118
  6. MYSLEE [Concomitant]
     Route: 065
     Dates: start: 20100116

REACTIONS (2)
  - OVERDOSE [None]
  - RESTLESSNESS [None]
